FAERS Safety Report 4930341-0 (Version None)
Quarter: 2006Q1

REPORT INFORMATION
  Report Type: 
  Country: None (occurrence: None)
  Receive Date: 20060302
  Receipt Date: 20060227
  Transmission Date: 20060701
  Serious: Yes (Other)
  Sender: FDA-Public Use
  Company Number: US-JNJFOC-20050602705

PATIENT
  Sex: Female
  Weight: 99.79 kg

DRUGS (20)
  1. REMICADE [Suspect]
     Indication: RHEUMATOID ARTHRITIS
     Route: 042
  2. REMICADE [Suspect]
     Route: 042
  3. PREDNISONE [Concomitant]
  4. PREMARIN [Concomitant]
  5. SYNTHROID [Concomitant]
  6. DYAZIDE [Concomitant]
  7. DYAZIDE [Concomitant]
  8. FOLIC ACID [Concomitant]
  9. PREVACID [Concomitant]
  10. PRINIVIL [Concomitant]
  11. METHOTREXATE SODIUM [Concomitant]
  12. MOBIC [Concomitant]
  13. DARVOCET [Concomitant]
  14. DARVOCET [Concomitant]
  15. ZESTRIL [Concomitant]
  16. COMPAZINE [Concomitant]
  17. TRIAMTERENE [Concomitant]
  18. MIACALCIN [Concomitant]
  19. ASPIRIN [Concomitant]
  20. LEXAPRO [Concomitant]

REACTIONS (3)
  - BREAST CANCER [None]
  - BREAST CANCER FEMALE [None]
  - COUGH [None]
